FAERS Safety Report 17622732 (Version 1)
Quarter: 2020Q2

REPORT INFORMATION
  Report Type: Spontaneous
  Country: US (occurrence: US)
  Receive Date: 20200403
  Receipt Date: 20200403
  Transmission Date: 20200713
  Serious: Yes (Hospitalization)
  Sender: FDA-Public Use
  Company Number: NVSC2020US090999

PATIENT
  Age: 24 Year
  Sex: Male

DRUGS (1)
  1. ARTEMETHER,LUMEFANTRINE [Suspect]
     Active Substance: ARTEMETHER\LUMEFANTRINE
     Indication: PLASMODIUM FALCIPARUM INFECTION
     Dosage: UNK
     Route: 065

REACTIONS (1)
  - Haemolysis [Unknown]
